FAERS Safety Report 6237637-3 (Version None)
Quarter: 2009Q2

REPORT INFORMATION
  Report Type: 
  Country: None (occurrence: None)
  Receive Date: 20090619
  Receipt Date: 20090610
  Transmission Date: 20091009
  Serious: Yes (Hospitalization)
  Sender: FDA-Public Use
  Company Number: FR-MERCK-0906FRA00041

PATIENT
  Age: 35 Year
  Sex: Female
  Weight: 58 kg

DRUGS (21)
  1. EMEND [Suspect]
     Route: 048
     Dates: start: 20090310, end: 20090320
  2. ASPARAGINASE (AS DRUG) [Suspect]
     Route: 065
     Dates: start: 20090313, end: 20090313
  3. ASPARAGINASE (AS DRUG) [Suspect]
     Route: 065
     Dates: start: 20090302, end: 20090302
  4. ASPARAGINASE (AS DRUG) [Suspect]
     Route: 065
     Dates: start: 20090304, end: 20090304
  5. ASPARAGINASE (AS DRUG) [Suspect]
     Route: 065
     Dates: start: 20090306, end: 20090306
  6. ASPARAGINASE (AS DRUG) [Suspect]
     Route: 065
     Dates: start: 20090315, end: 20090315
  7. ASPARAGINASE (AS DRUG) [Suspect]
     Route: 065
     Dates: start: 20090317, end: 20090317
  8. ASPARAGINASE (AS DRUG) [Suspect]
     Route: 065
     Dates: start: 20090319, end: 20090319
  9. VORICONAZOLE [Suspect]
     Route: 042
     Dates: start: 20090314
  10. SULFAMETHOXAZOLE AND TRIMETHOPRIM [Concomitant]
     Route: 065
  11. ACETYLCYSTEINE [Concomitant]
     Route: 065
  12. TRAMADOL HYDROCHLORIDE [Concomitant]
     Route: 065
  13. TICLOPIDINE HYDROCHLORIDE [Concomitant]
     Route: 065
     Dates: start: 20090312, end: 20090312
  14. TICLOPIDINE HYDROCHLORIDE [Concomitant]
     Route: 065
     Dates: start: 20090314, end: 20090314
  15. TICLOPIDINE HYDROCHLORIDE [Concomitant]
     Route: 065
     Dates: start: 20090319, end: 20090319
  16. VORICONAZOLE [Suspect]
     Route: 048
     Dates: start: 20090301, end: 20090322
  17. DAUNORUBICIN [Concomitant]
     Indication: ACUTE LYMPHOCYTIC LEUKAEMIA
     Route: 065
     Dates: start: 20090101
  18. VINCRISTINE SULFATE [Concomitant]
     Indication: ACUTE LYMPHOCYTIC LEUKAEMIA
     Route: 065
     Dates: start: 20090101
  19. VINCRISTINE SULFATE [Concomitant]
     Route: 065
     Dates: start: 20090317, end: 20090317
  20. CYCLOPHOSPHAMIDE [Concomitant]
     Indication: ACUTE LYMPHOCYTIC LEUKAEMIA
     Route: 065
     Dates: start: 20090101
  21. CYCLOPHOSPHAMIDE [Concomitant]
     Route: 065
     Dates: start: 20090311, end: 20090312

REACTIONS (3)
  - CHOLESTASIS [None]
  - CYTOLYTIC HEPATITIS [None]
  - HEPATIC STEATOSIS [None]
